FAERS Safety Report 8208928-1 (Version None)
Quarter: 2012Q1

REPORT INFORMATION
  Report Type: 
  Country: None (occurrence: None)
  Receive Date: 20120314
  Receipt Date: 20120305
  Transmission Date: 20120608
  Serious: Yes (Other)
  Sender: FDA-Public Use
  Company Number: CA-JNJFOC-20120302759

PATIENT
  Sex: Male
  Weight: 80.5 kg

DRUGS (4)
  1. REMICADE [Suspect]
     Route: 042
     Dates: start: 20110501
  2. APO-HYDROXYQUINE [Concomitant]
     Route: 065
     Dates: start: 20120101
  3. SULFASALAZINE [Concomitant]
     Route: 065
     Dates: start: 20111201
  4. REMICADE [Suspect]
     Indication: COLITIS ULCERATIVE
     Route: 042
     Dates: start: 20120109

REACTIONS (2)
  - JOINT SWELLING [None]
  - FATIGUE [None]
